FAERS Safety Report 19890986 (Version 19)
Quarter: 2023Q2

REPORT INFORMATION
  Report Type: Spontaneous
  Country: GB (occurrence: GB)
  Receive Date: 20210928
  Receipt Date: 20230407
  Transmission Date: 20230722
  Serious: Yes (Life-Threatening, Hospitalization, Other)
  Sender: FDA-Public Use
  Company Number: GB-ACCORD-240197

PATIENT
  Age: 45 Year
  Sex: Male
  Weight: 98.70 kg

DRUGS (45)
  1. CARBOPLATIN [Suspect]
     Active Substance: CARBOPLATIN
     Indication: Diffuse large B-cell lymphoma stage II
     Dosage: 5 AUC, 750 MG 1Q3W
     Route: 042
     Dates: start: 20210901, end: 20210901
  2. CYTARABINE [Suspect]
     Active Substance: CYTARABINE
     Indication: Diffuse large B-cell lymphoma stage II
     Dosage: 1Q2H
     Route: 042
     Dates: start: 20210901, end: 20210902
  3. EPCORITAMAB [Suspect]
     Active Substance: EPCORITAMAB
     Indication: Diffuse large B-cell lymphoma stage II
     Dosage: 0.16 MILLIGRAM, SINGLE
     Route: 058
     Dates: start: 20210901, end: 20210901
  4. RITUXIMAB [Suspect]
     Active Substance: RITUXIMAB
     Indication: Diffuse large B-cell lymphoma stage II
     Dosage: 1Q3W
     Route: 042
     Dates: start: 20210831, end: 20210831
  5. DEXAMETHASONE [Suspect]
     Active Substance: DEXAMETHASONE
     Indication: Diffuse large B-cell lymphoma stage II
     Dosage: SINGLE
     Route: 048
     Dates: start: 20210831, end: 20210831
  6. DALTEPARIN [Suspect]
     Active Substance: DALTEPARIN
     Indication: Prophylaxis
     Dosage: 5000 UNITS, QD
     Route: 058
     Dates: start: 202107, end: 20210908
  7. CHLORPHENIRAMINE MALEATE [Concomitant]
     Active Substance: CHLORPHENIRAMINE MALEATE
     Route: 042
     Dates: start: 20210908, end: 20210908
  8. ACETAMINOPHEN [Concomitant]
     Active Substance: ACETAMINOPHEN
     Dates: start: 20210908, end: 20210908
  9. ONDANSETRON [Concomitant]
     Active Substance: ONDANSETRON
     Dates: start: 20210901, end: 20210901
  10. ACYCLOVIR [Concomitant]
     Active Substance: ACYCLOVIR
     Dates: start: 202103
  11. FILGRASTIM [Concomitant]
     Active Substance: FILGRASTIM
     Dates: start: 202104
  12. FLUOXETINE [Concomitant]
     Active Substance: FLUOXETINE HYDROCHLORIDE
     Dates: start: 202103
  13. FOLIC ACID [Concomitant]
     Active Substance: FOLIC ACID
     Dates: start: 202104
  14. LANSOPRAZOLE [Concomitant]
     Active Substance: LANSOPRAZOLE
     Dates: start: 202104
  15. POSACONAZOLE [Concomitant]
     Active Substance: POSACONAZOLE
     Dates: start: 202107
  16. METOCLOPRAMIDE [Concomitant]
     Active Substance: METOCLOPRAMIDE
     Dates: start: 20211011
  17. DEXAMETHASONE PHOSPHATE [Concomitant]
     Active Substance: DEXAMETHASONE PHOSPHATE
     Dates: start: 20210902, end: 20210911
  18. DEXAMETHASONE [Concomitant]
     Active Substance: DEXAMETHASONE
     Indication: Prophylaxis
     Route: 042
     Dates: start: 20210908, end: 20210908
  19. DEXAMETHASONE [Concomitant]
     Active Substance: DEXAMETHASONE
     Indication: Prophylaxis
     Route: 048
     Dates: start: 20210909, end: 20210911
  20. ACETAMINOPHEN [Concomitant]
     Active Substance: ACETAMINOPHEN
     Dates: start: 20210908, end: 20210922
  21. DEXAMETHASONE [Suspect]
     Active Substance: DEXAMETHASONE
     Indication: Diffuse large B-cell lymphoma stage II
     Dosage: SINGLE
     Route: 048
     Dates: start: 20211008
  22. DEXAMETHASONE [Suspect]
     Active Substance: DEXAMETHASONE
     Indication: Diffuse large B-cell lymphoma stage II
     Route: 048
     Dates: start: 20211009
  23. ACETAMINOPHEN [Concomitant]
     Active Substance: ACETAMINOPHEN
     Dates: start: 20210901
  24. CHLORPHENIRAMINE MALEATE [Concomitant]
     Active Substance: CHLORPHENIRAMINE MALEATE
     Dates: start: 20210908, end: 20210922
  25. CYTARABINE [Suspect]
     Active Substance: CYTARABINE
     Indication: Product used for unknown indication
     Dosage: 1Q2H
     Route: 042
     Dates: start: 20210902
  26. ACETAMINOPHEN [Concomitant]
     Active Substance: ACETAMINOPHEN
     Route: 048
     Dates: start: 20210831, end: 20210908
  27. CHLORPHENIRAMINE MALEATE [Concomitant]
     Active Substance: CHLORPHENIRAMINE MALEATE
     Route: 042
     Dates: start: 20210901, end: 20210901
  28. DEXAMETHASONE [Suspect]
     Active Substance: DEXAMETHASONE
     Indication: Diffuse large B-cell lymphoma stage II
     Dosage: 16 MG AT 15: 20 HRS
     Route: 048
     Dates: start: 20210909, end: 20210911
  29. EPCORITAMAB [Suspect]
     Active Substance: EPCORITAMAB
     Indication: Diffuse large B-cell lymphoma stage II
     Dosage: 0.8 MILLIGRAM, SINGLE
     Route: 058
     Dates: start: 20210908, end: 20210908
  30. DEXAMETHASONE [Suspect]
     Active Substance: DEXAMETHASONE
     Indication: Diffuse large B-cell lymphoma stage II
     Dosage: SINGLE
     Route: 048
     Dates: start: 20210901, end: 20210903
  31. DEXAMETHASONE [Suspect]
     Active Substance: DEXAMETHASONE
     Indication: Diffuse large B-cell lymphoma stage II
     Dosage: SINGLE
     Route: 042
     Dates: start: 20210908, end: 20210908
  32. DEXAMETHASONE [Suspect]
     Active Substance: DEXAMETHASONE
     Indication: Diffuse large B-cell lymphoma stage II
     Dosage: SINGLE
     Route: 048
     Dates: start: 20210922, end: 20210922
  33. DEXAMETHASONE [Suspect]
     Active Substance: DEXAMETHASONE
     Indication: Diffuse large B-cell lymphoma stage II
     Dosage: SINGLE
     Route: 048
     Dates: start: 20210923, end: 20210925
  34. EPCORITAMAB [Suspect]
     Active Substance: EPCORITAMAB
     Indication: Diffuse large B-cell lymphoma stage II
     Dosage: 48 MF, FULL DOSE
     Route: 058
     Dates: start: 20210922
  35. CYTARABINE [Suspect]
     Active Substance: CYTARABINE
     Indication: Diffuse large B-cell lymphoma stage II
     Dosage: 1Q2H
     Route: 042
     Dates: start: 20211006, end: 20211007
  36. CARBOPLATIN [Suspect]
     Active Substance: CARBOPLATIN
     Indication: Diffuse large B-cell lymphoma stage II
     Dosage: 5 AUC
     Route: 042
     Dates: start: 20211006
  37. RITUXIMAB [Suspect]
     Active Substance: RITUXIMAB
     Indication: Diffuse large B-cell lymphoma stage II
     Dosage: 1Q3W
     Route: 042
     Dates: start: 20211006
  38. EPCORITAMAB [Suspect]
     Active Substance: EPCORITAMAB
     Indication: Diffuse large B-cell lymphoma stage II
     Dosage: C2D15
     Route: 058
     Dates: start: 20211013
  39. CYTARABINE [Suspect]
     Active Substance: CYTARABINE
     Indication: Diffuse large B-cell lymphoma stage II
     Dosage: 2000 MG/M2, EVERY 12 HOURS
     Route: 042
     Dates: start: 20210901
  40. CHLORPHENIRAMINE MALEATE [Concomitant]
     Active Substance: CHLORPHENIRAMINE MALEATE
     Route: 042
     Dates: start: 20210831, end: 20210831
  41. DEXAMETHASONE [Suspect]
     Active Substance: DEXAMETHASONE
     Indication: Diffuse large B-cell lymphoma stage II
     Route: 048
     Dates: start: 20220914, end: 20220917
  42. DEXAMETHASONE [Suspect]
     Active Substance: DEXAMETHASONE
     Indication: Diffuse large B-cell lymphoma stage II
     Dosage: SINGLE
     Route: 048
     Dates: start: 20210902, end: 20210903
  43. CYTARABINE [Suspect]
     Active Substance: CYTARABINE
     Indication: Product used for unknown indication
     Dosage: 16 MG, SINGLE
     Route: 042
     Dates: start: 20210922, end: 20210922
  44. CYTARABINE [Suspect]
     Active Substance: CYTARABINE
     Indication: Diffuse large B-cell lymphoma
     Route: 042
  45. RITUXIMAB [Suspect]
     Active Substance: RITUXIMAB
     Indication: Diffuse large B-cell lymphoma

REACTIONS (5)
  - Neutropenic infection [Recovered/Resolved]
  - Febrile neutropenia [Recovered/Resolved]
  - Cellulitis [Recovered/Resolved]
  - Thrombocytopenia [Recovered/Resolved]
  - Product use issue [Unknown]

NARRATIVE: CASE EVENT DATE: 20210910
